FAERS Safety Report 4360494-7 (Version None)
Quarter: 2004Q2

REPORT INFORMATION
  Report Type: 
  Country: None (occurrence: None)
  Receive Date: 20040513
  Receipt Date: 20031203
  Transmission Date: 20050107
  Serious: Yes (Life-Threatening)
  Sender: FDA-Public Use
  Company Number: US-SHR-03-017502

PATIENT
  Age: 47 Year
  Sex: Female

DRUGS (6)
  1. ZEVALIN [Suspect]
     Indication: NON-HODGKIN'S LYMPHOMA
     Dosage: UNK, 1 DOSE, INTRAVENOUS
     Route: 042
     Dates: start: 20021210, end: 20021210
  2. RITUXAN [Suspect]
     Indication: NON-HODGKIN'S LYMPHOMA
     Dosage: UNK, 1 DOSE, INTRAVENOUS
     Route: 042
     Dates: start: 20021210, end: 20021210
  3. RITUXAN [Suspect]
     Indication: NON-HODGKIN'S LYMPHOMA
     Dosage: UNK, 1 DOSE, INTRAVENOUS
     Route: 042
     Dates: start: 20021217, end: 20021217
  4. ZEVALIN [Suspect]
     Indication: NON-HODGKIN'S LYMPHOMA
     Dosage: 20.6 MCI, 1 DOSE, INTRAVEOUS
     Route: 042
     Dates: end: 20020801
  5. ZEVALIN [Suspect]
     Indication: NON-HODGKIN'S LYMPHOMA
     Dosage: 20.6 MCI, 1 DOSE, INTRAVEOUS
     Route: 042
     Dates: start: 20021217, end: 20021217
  6. FLUDARA [Suspect]
     Indication: NON-HODGKIN'S LYMPHOMA
     Dosage: UNKNOWN
     Route: 065
     Dates: end: 20020701

REACTIONS (6)
  - ACUTE MYELOID LEUKAEMIA [None]
  - HAEMODILUTION [None]
  - HAEMOSIDEROSIS [None]
  - MYELODYSPLASTIC SYNDROME [None]
  - PANCYTOPENIA [None]
  - REFRACTORY ANAEMIA WITH AN EXCESS OF BLASTS [None]
